FAERS Safety Report 8861083 (Version 1)
Quarter: 2012Q4

REPORT INFORMATION
  Report Type: Report from Study
  Country: US (occurrence: SN)
  Receive Date: 20121025
  Receipt Date: 20121025
  Transmission Date: 20130627
  Serious: Yes (Other)
  Sender: FDA-Public Use
  Company Number: US-GILEAD-2012-0063465

PATIENT
  Age: 33 Year
  Sex: Female

DRUGS (3)
  1. EMTRICITABINE/TENOFOVIR DISOPROXIL FUMARATE [Suspect]
     Indication: PRODUCT USED FOR UNKNOWN INDICATION
     Dosage: 1 DF, QD
     Route: 048
     Dates: start: 20101210
  2. NORVIR [Concomitant]
     Dosage: UNK
     Dates: start: 20101210
  3. PREZISTA [Concomitant]
     Dosage: UNK
     Dates: start: 20101210

REACTIONS (1)
  - Abortion spontaneous [Recovered/Resolved]
